FAERS Safety Report 7796833-4 (Version None)
Quarter: 2011Q4

REPORT INFORMATION
  Report Type: 
  Country: None (occurrence: None)
  Receive Date: 20111005
  Receipt Date: 20110926
  Transmission Date: 20120403
  Serious: Yes (Death, Other)
  Sender: FDA-Public Use
  Company Number: FI-ELI_LILLY_AND_COMPANY-FI201109007466

PATIENT
  Sex: Female

DRUGS (16)
  1. ADALAT [Concomitant]
     Indication: HYPERTENSION
  2. TIZANIDINE HCL [Concomitant]
     Indication: MUSCLE RELAXANT THERAPY
  3. VITAMIN D [Concomitant]
     Indication: VITAMIN SUPPLEMENTATION
  4. PANACOD [Concomitant]
     Indication: PAIN
  5. FORTEO [Suspect]
     Indication: OSTEOPOROSIS
     Dosage: 20 UG, QD
     Dates: start: 20100310
  6. KALCIPOS [Concomitant]
     Indication: MINERAL SUPPLEMENTATION
  7. PREDNISOLONE [Concomitant]
     Indication: SYSTEMIC LUPUS ERYTHEMATOSUS
  8. EBASTINE [Concomitant]
     Indication: HYPERSENSITIVITY
  9. ACETAMINOPHEN [Concomitant]
     Indication: PAIN
  10. PRECOSA [Concomitant]
     Indication: DISBACTERIOSIS
  11. ENOXAPARIN SODIUM [Concomitant]
     Indication: EMBOLISM
  12. ASPIRIN [Concomitant]
     Indication: EMBOLISM
  13. SYMBICORT [Concomitant]
     Indication: ASTHMA
  14. NEXIUM [Concomitant]
     Indication: HYPERCHLORHYDRIA
  15. LYRICA [Concomitant]
     Indication: NEURALGIA
  16. KEFEXIN [Concomitant]
     Indication: INFECTION

REACTIONS (4)
  - DEATH [None]
  - POST PROCEDURAL INFECTION [None]
  - SKIN GRAFT [None]
  - POST PROCEDURAL COMPLICATION [None]
